FAERS Safety Report 8420043-0 (Version None)
Quarter: 2012Q2

REPORT INFORMATION
  Report Type: 
  Country: None (occurrence: None)
  Receive Date: 20120607
  Receipt Date: 20120525
  Transmission Date: 20120825
  Serious: No
  Sender: FDA-Public Use
  Company Number: US-ASTRAZENECA-2012SE34114

PATIENT
  Age: 75 Year
  Sex: Female

DRUGS (2)
  1. XANAX [Concomitant]
     Indication: ANXIETY
  2. BRILINTA [Suspect]
     Indication: ACUTE CORONARY SYNDROME
     Route: 048

REACTIONS (1)
  - HEART RATE INCREASED [None]
